FAERS Safety Report 23815066 (Version 2)
Quarter: 2024Q2

REPORT INFORMATION
  Report Type: Spontaneous
  Country: US (occurrence: US)
  Receive Date: 20240503
  Receipt Date: 20240514
  Transmission Date: 20240716
  Serious: Yes (Other)
  Sender: FDA-Public Use
  Company Number: US-PFIZER INC-202400098442

PATIENT
  Age: 72 Year
  Sex: Female

DRUGS (1)
  1. XELJANZ XR [Suspect]
     Active Substance: TOFACITINIB CITRATE
     Indication: Rheumatoid arthritis
     Dosage: 11 MG ONCE DAILY

REACTIONS (5)
  - Polyarthritis [Unknown]
  - Condition aggravated [Not Recovered/Not Resolved]
  - Treatment noncompliance [Unknown]
  - Myalgia [Unknown]
  - Muscular weakness [Unknown]
